FAERS Safety Report 24313268 (Version 1)
Quarter: 2024Q3

REPORT INFORMATION
  Report Type: Spontaneous
  Country: RO (occurrence: None)
  Receive Date: 20240912
  Receipt Date: 20240912
  Transmission Date: 20241017
  Serious: Yes (Hospitalization)
  Sender: ASTRAZENECA
  Company Number: 2024A195129

PATIENT
  Age: 81 Year
  Sex: Female
  Weight: 73 kg

DRUGS (1)
  1. DAPAGLIFLOZIN [Suspect]
     Active Substance: DAPAGLIFLOZIN
     Indication: Chronic kidney disease
     Route: 048
     Dates: start: 20231229

REACTIONS (1)
  - Occipital neuralgia [Unknown]

NARRATIVE: CASE EVENT DATE: 20240429
